FAERS Safety Report 8182285-1 (Version None)
Quarter: 2012Q1

REPORT INFORMATION
  Report Type: 
  Country: None (occurrence: None)
  Receive Date: 20120302
  Receipt Date: 20120227
  Transmission Date: 20120608
  Serious: Yes (Death)
  Sender: FDA-Public Use
  Company Number: PHHY2012MY016798

PATIENT
  Sex: Male

DRUGS (1)
  1. GLEEVEC [Suspect]
     Indication: CHRONIC MYELOID LEUKAEMIA
     Dosage: 600 MG, DAILY

REACTIONS (5)
  - NEOPLASM MALIGNANT [None]
  - SEPTIC SHOCK [None]
  - CHRONIC MYELOID LEUKAEMIA TRANSFORMATION [None]
  - CHRONIC MYELOID LEUKAEMIA [None]
  - MULTI-ORGAN FAILURE [None]
